FAERS Safety Report 16382890 (Version 1)
Quarter: 2019Q2

REPORT INFORMATION
  Report Type: Report from Study
  Country: RU (occurrence: RU)
  Receive Date: 20190603
  Receipt Date: 20190603
  Transmission Date: 20190711
  Serious: Yes (Other)
  Sender: FDA-Public Use
  Company Number: RU-ASTRAZENECA-2019SE80432

PATIENT
  Age: 59 Year
  Sex: Female
  Weight: 110 kg

DRUGS (6)
  1. METFORMIN [Concomitant]
     Active Substance: METFORMIN HYDROCHLORIDE
  2. LORISTA [Concomitant]
     Active Substance: LOSARTAN POTASSIUM
  3. FORXIGA [Suspect]
     Active Substance: DAPAGLIFLOZIN
     Indication: TYPE 2 DIABETES MELLITUS
     Route: 048
     Dates: start: 2018
  4. DIABETON [Concomitant]
     Active Substance: GLICLAZIDE
  5. BISOPROLOL [Concomitant]
     Active Substance: BISOPROLOL
  6. GLUCOPHAGE [Concomitant]
     Active Substance: METFORMIN HYDROCHLORIDE

REACTIONS (6)
  - Urine calcium [Not Recovered/Not Resolved]
  - Pollakiuria [Unknown]
  - Blood pressure fluctuation [Not Recovered/Not Resolved]
  - Arrhythmia [Not Recovered/Not Resolved]
  - Heart rate increased [Not Recovered/Not Resolved]
  - Blood glucose decreased [Not Recovered/Not Resolved]
